FAERS Safety Report 12323304 (Version 2)
Quarter: 2016Q2

REPORT INFORMATION
  Report Type: Spontaneous
  Country: US (occurrence: US)
  Receive Date: 20160502
  Receipt Date: 20160620
  Transmission Date: 20160815
  Serious: No
  Sender: FDA-Public Use
  Company Number: US-JNJFOC-20160400192

PATIENT
  Sex: Female

DRUGS (1)
  1. REMICADE [Suspect]
     Active Substance: INFLIXIMAB
     Indication: COLITIS ULCERATIVE
     Route: 042

REACTIONS (7)
  - Abdominal distension [Unknown]
  - Abdominal pain [Unknown]
  - Flushing [Unknown]
  - Dyspnoea [Unknown]
  - Vomiting [Unknown]
  - Pruritus [Unknown]
  - Infusion related reaction [Unknown]
